FAERS Safety Report 6720396-5 (Version None)
Quarter: 2010Q2

REPORT INFORMATION
  Report Type: 
  Country: None (occurrence: None)
  Receive Date: 20100511
  Receipt Date: 20100311
  Transmission Date: 20101027
  Serious: Yes (Other)
  Sender: FDA-Public Use
  Company Number: LY-PFIZER INC-2010050339

PATIENT
  Age: 75 Year
  Sex: Male

DRUGS (1)
  1. SUNITINIB MALATE [Suspect]
     Indication: RENAL CELL CARCINOMA
     Dosage: 50 MG, 1X/DAY
     Route: 048
     Dates: start: 20071201

REACTIONS (9)
  - ANAEMIA [None]
  - ASTHENIA [None]
  - DIARRHOEA [None]
  - NAUSEA [None]
  - NEUROPATHY PERIPHERAL [None]
  - NEUTROPENIA [None]
  - PALMAR-PLANTAR ERYTHRODYSAESTHESIA SYNDROME [None]
  - RASH [None]
  - VOMITING [None]
